FAERS Safety Report 9632559 (Version 1)
Quarter: 2013Q4

REPORT INFORMATION
  Report Type: Spontaneous
  Country: US (occurrence: US)
  Receive Date: 20131018
  Receipt Date: 20131018
  Transmission Date: 20140711
  Serious: No
  Sender: FDA-Public Use
  Company Number: US-B.I. PHARMACEUTICALS,INC./RIDGEFIELD-2013-BI-31695BP

PATIENT
  Age: 62 Year
  Sex: Male
  Weight: 79 kg

DRUGS (7)
  1. ATROVENT INHALATION SOLUTION [Suspect]
     Indication: BRONCHIAL HYPERREACTIVITY
     Dosage: 136 MCG
     Route: 055
     Dates: start: 20130923, end: 20130925
  2. VERAPAMIL ER [Concomitant]
     Indication: ARRHYTHMIA SUPRAVENTRICULAR
     Dosage: 240 MG
     Route: 048
     Dates: start: 1996
  3. LOSARTAN HCT [Concomitant]
     Indication: HYPERTENSION
     Dosage: DOSE STRENGTH AND DAILY DOSE: 100-25 MG
     Route: 048
     Dates: start: 2008
  4. ASPIRIN [Concomitant]
     Indication: CARDIAC DISORDER
     Dosage: 81 MG
     Route: 048
     Dates: start: 1996
  5. FAMOTIDINE [Concomitant]
     Indication: HIATUS HERNIA
     Dosage: 20 MG
     Route: 048
     Dates: start: 2003
  6. FAMOTIDINE [Concomitant]
     Indication: GASTROOESOPHAGEAL REFLUX DISEASE
  7. ZYRTEC [Concomitant]
     Indication: SEASONAL ALLERGY
     Dosage: 20 MG
     Route: 048
     Dates: start: 201309

REACTIONS (4)
  - Dizziness [Recovered/Resolved]
  - Palpitations [Recovered/Resolved]
  - Off label use [Recovered/Resolved]
  - Product quality issue [Unknown]
